FAERS Safety Report 5460479-3 (Version None)
Quarter: 2007Q3

REPORT INFORMATION
  Report Type: 
  Country: None (occurrence: None)
  Receive Date: 20070919
  Receipt Date: 20070716
  Transmission Date: 20080115
  Serious: Yes (Other)
  Sender: FDA-Public Use
  Company Number: US-ASTRAZENECA-2007UW16863

PATIENT
  Age: 50 Year
  Sex: Male
  Weight: 111.4 kg

DRUGS (4)
  1. SEROQUEL [Suspect]
     Indication: SLEEP DISORDER
     Route: 048
     Dates: start: 20000101
  2. RISPERDAL [Concomitant]
     Dates: start: 20050101
  3. ARIPIPRAZOLE [Concomitant]
     Dates: start: 20000101
  4. STELAZINE [Concomitant]

REACTIONS (4)
  - BLOOD CHOLESTEROL INCREASED [None]
  - DIABETES MELLITUS [None]
  - DIABETIC COMA [None]
  - OBESITY [None]
